FAERS Safety Report 7141235-7 (Version None)
Quarter: 2010Q4

REPORT INFORMATION
  Report Type: 
  Country: None (occurrence: None)
  Receive Date: 20101207
  Receipt Date: 20101129
  Transmission Date: 20110411
  Serious: Yes (Other)
  Sender: FDA-Public Use
  Company Number: GB-JNJFOC-20100500644

PATIENT
  Sex: Male

DRUGS (9)
  1. DARUNAVIR [Suspect]
     Indication: HIV INFECTION
     Route: 048
  2. ETRAVIRINE [Suspect]
     Indication: HIV INFECTION
     Route: 048
  3. RITONAVIR [Suspect]
     Indication: HIV INFECTION
     Route: 048
  4. FLUCONAZOLE [Concomitant]
     Indication: ILL-DEFINED DISORDER
     Route: 065
  5. ATORVASTATIN CALCIUM [Concomitant]
     Indication: BLOOD CHOLESTEROL DECREASED
     Route: 065
  6. EZETIMIBE [Concomitant]
     Indication: HYPERLIPIDAEMIA
     Route: 065
  7. STEROIDS NOS [Concomitant]
     Indication: ILL-DEFINED DISORDER
     Route: 065
  8. ZOPICLONE [Concomitant]
     Indication: INSOMNIA
     Route: 065
  9. CO-TRIMOXAZOLE [Concomitant]
     Indication: PROPHYLAXIS
     Route: 065

REACTIONS (3)
  - CD4 LYMPHOCYTES DECREASED [None]
  - HYPOTHALAMO-PITUITARY DISORDER [None]
  - SECONDARY ADRENOCORTICAL INSUFFICIENCY [None]
